FAERS Safety Report 25807523 (Version 1)
Quarter: 2025Q3

REPORT INFORMATION
  Report Type: Spontaneous
  Country: EU (occurrence: EU)
  Receive Date: 20250916
  Receipt Date: 20250916
  Transmission Date: 20251020
  Serious: Yes (Other)
  Sender: BRACCO
  Company Number: EU-BRACCO-2025FR06330

PATIENT
  Age: 71 Year
  Sex: Male

DRUGS (7)
  1. IOMERON [Suspect]
     Active Substance: IOMEPROL
     Indication: Angiogram
     Dates: start: 20250908, end: 20250908
  2. ATORVASTATIN [Concomitant]
     Active Substance: ATORVASTATIN
  3. GLICLAZIDE [Concomitant]
     Active Substance: GLICLAZIDE
  4. LERCANIDIPINE HYDROCHLORIDE [Concomitant]
     Active Substance: LERCANIDIPINE HYDROCHLORIDE
  5. METFORMIN HYDROCHLORIDE [Concomitant]
     Active Substance: METFORMIN HYDROCHLORIDE
  6. NITROGLYCERIN [Concomitant]
     Active Substance: NITROGLYCERIN
  7. PENICILLIN V [Concomitant]
     Active Substance: PENICILLIN V

REACTIONS (2)
  - Oxygen saturation decreased [Not Recovered/Not Resolved]
  - Urticaria [Not Recovered/Not Resolved]

NARRATIVE: CASE EVENT DATE: 20250908
